FAERS Safety Report 5054745-3 (Version None)
Quarter: 2006Q3

REPORT INFORMATION
  Report Type: 
  Country: None (occurrence: None)
  Receive Date: 20060719
  Receipt Date: 20060712
  Transmission Date: 20061208
  Serious: Yes (Death, Other)
  Sender: FDA-Public Use
  Company Number: PHBS2006JP10461

PATIENT
  Age: 59 Year
  Sex: Female

DRUGS (2)
  1. PREDNISOLONE [Suspect]
     Indication: CONNECTIVE TISSUE INFLAMMATION
     Dosage: 38 MG/D
     Route: 048
  2. CYCLOSPORINE [Suspect]
     Indication: CONNECTIVE TISSUE INFLAMMATION
     Dosage: 150 MG/D
     Route: 048

REACTIONS (6)
  - BLOOD BETA-D-GLUCAN INCREASED [None]
  - BLOOD IMMUNOGLOBULIN G INCREASED [None]
  - CYTOMEGALOVIRUS ANTIGEN POSITIVE [None]
  - INTERSTITIAL LUNG DISEASE [None]
  - LYMPHOCYTE COUNT DECREASED [None]
  - PNEUMOCYSTIS JIROVECI PNEUMONIA [None]
